FAERS Safety Report 7902048-9 (Version None)
Quarter: 2011Q4

REPORT INFORMATION
  Report Type: 
  Country: None (occurrence: None)
  Receive Date: 20111108
  Receipt Date: 20111028
  Transmission Date: 20120403
  Serious: Yes (Death, Hospitalization, Disabling)
  Sender: FDA-Public Use
  Company Number: JP-GLAXOSMITHKLINE-B0732239A

PATIENT
  Sex: Female
  Weight: 40 kg

DRUGS (66)
  1. ZOVIRAX [Suspect]
     Dosage: 400MG PER DAY
     Route: 048
     Dates: start: 20110509, end: 20110511
  2. ZOVIRAX [Suspect]
     Dosage: 100MG PER DAY
     Route: 048
     Dates: start: 20110512, end: 20110525
  3. ALLOPURINOL [Concomitant]
     Route: 048
  4. TECIPUL [Concomitant]
     Route: 048
  5. BAKTAR [Concomitant]
     Route: 048
  6. FUROSEMIDE [Concomitant]
     Route: 048
  7. PRIMPERAN TAB [Concomitant]
     Indication: SOMNOLENCE
     Route: 048
  8. UNKNOWN DRUG [Concomitant]
     Indication: SOMNOLENCE
     Route: 048
  9. PENTAZOCINE LACTATE [Concomitant]
     Route: 048
  10. PREDNISOLONE [Concomitant]
     Route: 048
  11. KALIMATE [Concomitant]
     Route: 048
  12. MIRACLID [Concomitant]
     Route: 042
  13. ITRACONAZOLE [Concomitant]
     Route: 048
  14. PROGRAF [Concomitant]
     Route: 048
  15. MOTILIUM [Concomitant]
     Indication: SOMNOLENCE
     Route: 048
  16. MEROPENEM [Concomitant]
     Route: 042
  17. PROGRAF [Concomitant]
     Route: 042
  18. KYTRIL [Concomitant]
     Route: 042
  19. ZOVIRAX [Suspect]
     Indication: PROPHYLAXIS
     Dosage: 600MG PER DAY
     Route: 048
     Dates: start: 20110316, end: 20110502
  20. PROMAC [Concomitant]
     Route: 048
  21. FAMOTIDINE [Concomitant]
     Route: 048
  22. ACETAMINOPHEN [Concomitant]
     Indication: PYREXIA
     Route: 048
  23. NEO-MINOPHAGEN-C [Concomitant]
     Route: 042
  24. PRIMPERAN TAB [Concomitant]
     Route: 042
  25. METHOTREXATE [Concomitant]
     Route: 042
  26. SODIUM BICARBONATE [Concomitant]
     Route: 042
  27. BUPRENORPHINE HCL [Concomitant]
     Route: 042
  28. METHYLPREDNISOLONE SODIUM SUCCINATE [Concomitant]
     Route: 042
  29. NALOXONE HCL [Concomitant]
     Route: 042
  30. ZOVIRAX [Suspect]
     Dosage: 1200MG PER DAY
     Route: 048
     Dates: start: 20110506, end: 20110508
  31. ZOVIRAX [Suspect]
     Indication: HERPES ZOSTER
     Route: 042
     Dates: start: 20110503, end: 20110505
  32. PREDNISOLONE [Concomitant]
     Route: 048
  33. LOXONIN [Concomitant]
     Indication: PAIN
     Route: 048
  34. VFEND [Concomitant]
     Route: 048
  35. GASMOTIN [Concomitant]
     Route: 048
  36. MIDAZOLAM HCL [Concomitant]
     Route: 042
  37. ZOVIRAX [Suspect]
     Dosage: 800MG PER DAY
     Route: 048
     Dates: start: 20110508, end: 20110508
  38. AMLODIPINE [Concomitant]
     Route: 048
  39. ADALAT [Concomitant]
     Indication: BLOOD PRESSURE INCREASED
     Route: 048
  40. MYCOPHENOLATE MOFETIL (CELLCEPT) [Concomitant]
     Route: 048
  41. FUNGUARD [Concomitant]
     Route: 042
  42. FOY [Concomitant]
     Route: 042
  43. GANCICLOVIR [Concomitant]
     Route: 042
  44. ZOVIRAX [Suspect]
     Dosage: 200MG PER DAY
     Route: 048
     Dates: start: 20110613
  45. CANDESARTAN CILEXETIL [Concomitant]
     Route: 048
  46. LYRICA [Concomitant]
     Route: 048
  47. PROMAC [Concomitant]
     Route: 048
  48. ALLOID G [Concomitant]
     Route: 048
  49. LENDORMIN [Concomitant]
     Route: 048
  50. FUROSEMIDE [Concomitant]
     Route: 042
  51. LANSOPRAZOLE [Concomitant]
     Route: 042
  52. PREDNISOLONE [Concomitant]
     Route: 042
  53. THIOPENTAL SODIUM [Concomitant]
     Route: 042
  54. ZOSYN [Concomitant]
     Route: 042
  55. KETOPROFEN [Concomitant]
     Route: 062
  56. SILECE [Concomitant]
     Route: 048
  57. ATARAX [Concomitant]
     Route: 042
  58. DOPAMINE HCL [Concomitant]
     Route: 042
  59. ZOVIRAX [Suspect]
     Dosage: 600MG PER DAY
     Route: 048
     Dates: start: 20110526, end: 20110612
  60. URSO 250 [Concomitant]
     Route: 048
  61. PROGRAF [Concomitant]
     Route: 048
  62. SOLU-MEDROL [Concomitant]
     Route: 042
  63. UNKNOWN DRUG [Concomitant]
     Route: 042
  64. KETALAR [Concomitant]
     Route: 042
  65. PENTAZOCINE LACTATE [Concomitant]
     Route: 042
  66. SOLU-CORTEF [Concomitant]
     Route: 042

REACTIONS (15)
  - QUADRIPLEGIA [None]
  - BLINDNESS CORTICAL [None]
  - RENAL IMPAIRMENT [None]
  - MUSCULAR WEAKNESS [None]
  - DYSARTHRIA [None]
  - PAIN IN EXTREMITY [None]
  - ENCEPHALITIS [None]
  - HAEMATURIA [None]
  - PANCREATITIS ACUTE [None]
  - POLYOMAVIRUS TEST POSITIVE [None]
  - MYOSITIS [None]
  - DEHYDRATION [None]
  - ABULIA [None]
  - GRAFT VERSUS HOST DISEASE [None]
  - VISUAL IMPAIRMENT [None]
